FAERS Safety Report 6179290-3 (Version None)
Quarter: 2009Q2

REPORT INFORMATION
  Report Type: 
  Country: None (occurrence: None)
  Receive Date: 20090430
  Receipt Date: 20090420
  Transmission Date: 20091009
  Serious: Yes (Death, Other)
  Sender: FDA-Public Use
  Company Number: CLOF-1000527

PATIENT

DRUGS (1)
  1. CLOLAR [Suspect]
     Indication: MYELODYSPLASTIC SYNDROME
     Dosage: 15 MG/M2, QDX5, INTRAVENOUS
     Route: 042

REACTIONS (1)
  - RENAL FAILURE ACUTE [None]
